FAERS Safety Report 20777785 (Version 2)
Quarter: 2022Q3

REPORT INFORMATION
  Report Type: Report from Study
  Country: US (occurrence: US)
  Receive Date: 20220503
  Receipt Date: 20220721
  Transmission Date: 20221027
  Serious: Yes (Other)
  Sender: FDA-Public Use
  Company Number: US-BAYER-2022A059691

PATIENT
  Age: 74 Year
  Sex: Male
  Weight: 58.503 kg

DRUGS (7)
  1. GADOBUTROL [Suspect]
     Active Substance: GADOBUTROL
     Indication: Spinal fusion surgery
     Dosage: UNK UNK, ONCE
  2. OPTIMARK [Suspect]
     Active Substance: GADOVERSETAMIDE
     Dosage: UNK
  3. ROSUVASTATIN [Concomitant]
     Active Substance: ROSUVASTATIN
  4. SERTRALINE [Concomitant]
     Active Substance: SERTRALINE HYDROCHLORIDE
  5. LORAZEPAM [Concomitant]
     Active Substance: LORAZEPAM
  6. VITAMIN D NOS [Concomitant]
     Active Substance: VITAMIN D NOS
  7. VITAMIN B12 [Concomitant]
     Active Substance: CYANOCOBALAMIN

REACTIONS (4)
  - Gadolinium deposition disease [None]
  - Mitochondrial toxicity [None]
  - Nontherapeutic agent urine positive [None]
  - Cytokine increased [None]
